FAERS Safety Report 5590474-5 (Version None)
Quarter: 2008Q1

REPORT INFORMATION
  Report Type: 
  Country: None (occurrence: None)
  Receive Date: 20080114
  Receipt Date: 20080110
  Transmission Date: 20080703
  Serious: No
  Sender: FDA-Public Use
  Company Number: US-BOEHRINGER INGELHEIM PHARMACEUTICALS, INC.-2007-BP-23855BP

PATIENT
  Age: 72 Year
  Sex: Male

DRUGS (4)
  1. MIRAPEX [Suspect]
     Indication: RESTLESS LEGS SYNDROME
     Route: 048
     Dates: start: 20071001
  2. PLAVIX [Concomitant]
  3. LIPITOR [Concomitant]
  4. PROTONIX [Concomitant]

REACTIONS (2)
  - DYSKINESIA [None]
  - PRURITUS [None]
